FAERS Safety Report 17772835 (Version 2)
Quarter: 2020Q3

REPORT INFORMATION
  Report Type: Report from Study
  Country: CO (occurrence: CO)
  Receive Date: 20200512
  Receipt Date: 20200926
  Transmission Date: 20201102
  Serious: Yes (Life-Threatening, Hospitalization)
  Sender: FDA-Public Use
  Company Number: PHHY2019CO104176

PATIENT
  Sex: Female
  Weight: 21 kg

DRUGS (1)
  1. REVOLADE [Suspect]
     Active Substance: ELTROMBOPAG
     Indication: IMMUNE THROMBOCYTOPENIA
     Dosage: 50 MG, QD
     Route: 048
     Dates: start: 201901

REACTIONS (6)
  - Platelet count decreased [Unknown]
  - Mouth haemorrhage [Unknown]
  - Immune thrombocytopenia [Unknown]
  - Contusion [Unknown]
  - Petechiae [Recovering/Resolving]
  - Disease recurrence [Unknown]
